FAERS Safety Report 25496031 (Version 1)
Quarter: 2025Q2

REPORT INFORMATION
  Report Type: Spontaneous
  Country: CA (occurrence: CA)
  Receive Date: 20250630
  Receipt Date: 20250630
  Transmission Date: 20250716
  Serious: Yes (Other)
  Sender: MYLAN
  Company Number: CA-MYLANLABS-2025M1054112

PATIENT
  Age: 33 Year
  Sex: Female
  Weight: 72 kg

DRUGS (2)
  1. ISOTRETINOIN [Suspect]
     Active Substance: ISOTRETINOIN
     Indication: Product used for unknown indication
     Dosage: 40 MILLIGRAM, QD (1 EVERY 1 DAYS)
  2. VARENICLINE TARTRATE [Suspect]
     Active Substance: VARENICLINE TARTRATE
     Indication: Product used for unknown indication
     Dosage: 1 MILLIGRAM, BID (2 EVERY 1 DAYS)

REACTIONS (4)
  - Chorioretinopathy [Not Recovered/Not Resolved]
  - Photopsia [Not Recovered/Not Resolved]
  - Retinal detachment [Not Recovered/Not Resolved]
  - Visual impairment [Not Recovered/Not Resolved]
